FAERS Safety Report 10759187 (Version 4)
Quarter: 2015Q1

REPORT INFORMATION
  Report Type: Spontaneous
  Country: US (occurrence: US)
  Receive Date: 20150203
  Receipt Date: 20150217
  Transmission Date: 20150721
  Serious: Yes (Other)
  Sender: FDA-Public Use
  Company Number: CHPA2015US001309

PATIENT
  Age: 72 Year
  Sex: Female

DRUGS (3)
  1. VOLTAREN XR [Suspect]
     Active Substance: DICLOFENAC SODIUM
     Indication: ROTATOR CUFF SYNDROME
     Dosage: UNK
     Route: 065
     Dates: start: 20141117
  2. VOLTAREN [Suspect]
     Active Substance: DICLOFENAC SODIUM
     Indication: ROTATOR CUFF SYNDROME
     Dosage: 2 G, QD
     Route: 061
     Dates: start: 2014
  3. VOLTAREN [Suspect]
     Active Substance: DICLOFENAC SODIUM
     Dosage: 2 G, 3 TO 4 TIMES A DAY
     Route: 061
     Dates: start: 20141117

REACTIONS (5)
  - Drug administration error [Unknown]
  - Blood triglycerides increased [Recovering/Resolving]
  - Drug administered at inappropriate site [Unknown]
  - Off label use [Unknown]
  - Therapeutic response unexpected [Unknown]

NARRATIVE: CASE EVENT DATE: 20141117
